FAERS Safety Report 12047114 (Version 1)
Quarter: 2016Q1

REPORT INFORMATION
  Report Type: Spontaneous
  Country: US (occurrence: US)
  Receive Date: 20160208
  Receipt Date: 20160208
  Transmission Date: 20160526
  Serious: No
  Sender: FDA-Public Use
  Company Number: US-PFIZER INC-2016015752

PATIENT

DRUGS (1)
  1. XELJANZ [Suspect]
     Active Substance: TOFACITINIB CITRATE
     Dosage: UNK

REACTIONS (8)
  - Skin exfoliation [Unknown]
  - Headache [Unknown]
  - Influenza like illness [Unknown]
  - Abdominal pain upper [Unknown]
  - Toothache [Unknown]
  - Hypertension [Unknown]
  - Facial pain [Unknown]
  - Chest pain [Unknown]
